FAERS Safety Report 8923221 (Version 1)
Quarter: 2012Q4

REPORT INFORMATION
  Report Type: 
  Country: IT (occurrence: IT)
  Receive Date: 20121123
  Receipt Date: 20121123
  Transmission Date: 20130627
  Serious: Yes (Hospitalization, Other)
  Sender: FDA-Public Use
  Company Number: IT-PFIZER INC-2012193023

PATIENT
  Age: 39 Year
  Sex: Female

DRUGS (4)
  1. ZOLOFT [Suspect]
     Indication: INTENTIONAL OVERDOSE
     Dosage: 120 DF, total
     Route: 048
     Dates: start: 20120712, end: 20120712
  2. VOLTAREN [Suspect]
     Indication: INTENTIONAL OVERDOSE
     Dosage: 60 DF, total
     Route: 048
     Dates: start: 20120712, end: 20120712
  3. STILNOX [Suspect]
     Indication: INTENTIONAL OVERDOSE
     Dosage: 60 DF, total
     Route: 048
     Dates: start: 20120712, end: 20120712
  4. LANOXIN [Concomitant]
     Indication: INTENTIONAL OVERDOSE
     Dosage: 6 DF, UNK
     Route: 048
     Dates: start: 20120712, end: 20120712

REACTIONS (3)
  - Intentional overdose [Unknown]
  - Somnolence [Recovered/Resolved]
  - Abnormal behaviour [Unknown]
